FAERS Safety Report 10542246 (Version 1)
Quarter: 2014Q4

REPORT INFORMATION
  Report Type: Spontaneous
  Country: US (occurrence: None)
  Receive Date: 20141010
  Receipt Date: 20141010
  Transmission Date: 20150529
  Serious: No
  Sender: FDA-Public Use
  Company Number: 163-POMAL-14054545

PATIENT
  Age: 80 Year
  Sex: Male
  Weight: 67.3 kg

DRUGS (6)
  1. HYDROCHLOROTHIAZIDE. [Concomitant]
     Active Substance: HYDROCHLOROTHIAZIDE
  2. POMALYST [Suspect]
     Active Substance: POMALIDOMIDE
     Indication: PLASMA CELL MYELOMA
     Dosage: 3 MG, 21 IN 28 D, PO
     Route: 048
     Dates: start: 20140327, end: 2014
  3. ATENOLOL. [Concomitant]
     Active Substance: ATENOLOL
  4. DILTIAZEM [Concomitant]
     Active Substance: DILTIAZEM
  5. SENOKOT ( SENNA FRUIT) [Concomitant]
  6. ASPIRIN ( ACETYLSALICYLIC ACID) [Concomitant]

REACTIONS (6)
  - Musculoskeletal pain [None]
  - Decreased appetite [None]
  - Pain in jaw [None]
  - Neuropathy peripheral [None]
  - Bronchitis [None]
  - Fatigue [None]

NARRATIVE: CASE EVENT DATE: 2014
